FAERS Safety Report 17222413 (Version 2)
Quarter: 2020Q1

REPORT INFORMATION
  Report Type: Report from Study
  Country: None (occurrence: US)
  Receive Date: 20200101
  Receipt Date: 20200107
  Transmission Date: 20200409
  Serious: Yes (Hospitalization)
  Sender: FDA-Public Use
  Company Number: US-ABBVIE-19K-163-2951760-00

PATIENT
  Age: 70 Year
  Sex: Female
  Weight: 78.09 kg

DRUGS (4)
  1. BALSALAZIDE [Concomitant]
     Active Substance: BALSALAZIDE
     Indication: PRODUCT USED FOR UNKNOWN INDICATION
  2. CLONIDINE. [Concomitant]
     Active Substance: CLONIDINE
     Indication: BLOOD PRESSURE MEASUREMENT
  3. HUMIRA [Suspect]
     Active Substance: ADALIMUMAB
     Indication: CROHN^S DISEASE
     Route: 058
     Dates: start: 20190923
  4. CHLORTHALIDONE. [Concomitant]
     Active Substance: CHLORTHALIDONE
     Indication: BLOOD PRESSURE MEASUREMENT

REACTIONS (7)
  - Injury [Unknown]
  - Contusion [Unknown]
  - Rash [Unknown]
  - Rash macular [Unknown]
  - Chest pain [Unknown]
  - Joint injury [Unknown]
  - Road traffic accident [Unknown]

NARRATIVE: CASE EVENT DATE: 20190925
